FAERS Safety Report 26000815 (Version 1)
Quarter: 2025Q4

REPORT INFORMATION
  Report Type: Spontaneous
  Country: US (occurrence: US)
  Receive Date: 20251105
  Receipt Date: 20251105
  Transmission Date: 20260118
  Serious: Yes (Hospitalization)
  Sender: ANI
  Company Number: US-ANIPHARMA-2025-US-042321

PATIENT
  Age: 65 Year
  Sex: Male
  Weight: 93.89 kg

DRUGS (13)
  1. ISOSORBIDE MONONITRATE 30MG ER [Concomitant]
  2. LOSARTAN [Concomitant]
     Active Substance: LOSARTAN
  3. METOPROLOL SUCCINATE [Concomitant]
     Active Substance: METOPROLOL SUCCINATE
  4. POTASSIUM CHLORIDE [Concomitant]
     Active Substance: POTASSIUM CHLORIDE
  5. RAYALDEE [Concomitant]
     Active Substance: CALCIFEDIOL
  6. BREZTRI AERO SPHERE INHALER 120 INH [Concomitant]
  7. VELTASSA B.4GM POWDER [Concomitant]
  8. ATORVASTATIN [Concomitant]
     Active Substance: ATORVASTATIN
  9. ELIQUIS [Concomitant]
     Active Substance: APIXABAN
  10. FOLIC ACID [Concomitant]
     Active Substance: FOLIC ACID
  11. FUROSEMIDE [Concomitant]
     Active Substance: FUROSEMIDE
  12. INVOKANA [Concomitant]
     Active Substance: CANAGLIFLOZIN
  13. CORTICOTROPIN [Suspect]
     Active Substance: CORTICOTROPIN
     Indication: Sarcoidosis
     Dosage: 40 UNITS TWICE WEEKLY
     Route: 058
     Dates: start: 20250624, end: 20250826

REACTIONS (6)
  - Swelling [Recovered/Resolved]
  - Contraindicated product administered [Recovered/Resolved]
  - Blood glucose increased [Recovered/Resolved]
  - Fluid retention [None]
  - Asthenia [Recovering/Resolving]
  - Vomiting [Recovered/Resolved]

NARRATIVE: CASE EVENT DATE: 20250624
